FAERS Safety Report 8022000-5 (Version None)
Quarter: 2012Q1

REPORT INFORMATION
  Report Type: 
  Country: None (occurrence: None)
  Receive Date: 20120104
  Receipt Date: 20111223
  Transmission Date: 20120608
  Serious: Yes (Hospitalization, Other)
  Sender: FDA-Public Use
  Company Number: US-ASTRAZENECA-2010SE60675

PATIENT
  Age: 82 Year
  Sex: Female
  Weight: 81.2 kg

DRUGS (12)
  1. LOVAZA [Concomitant]
     Route: 048
  2. GLUCOSAMINE CHONDROITIN [Concomitant]
     Dosage: TWICE A DAY
     Route: 048
  3. VICODIN [Concomitant]
     Dosage: 5/500
     Route: 048
  4. K-TAB [Concomitant]
     Route: 048
  5. LYRICA [Concomitant]
     Route: 048
  6. SOMA [Concomitant]
     Dosage: 350 MG NIGHTLY AS NEEDED
     Route: 048
  7. CELEBREX [Concomitant]
     Route: 048
  8. DETROL LA [Concomitant]
     Route: 048
  9. NEXIUM [Suspect]
     Route: 048
  10. SYNTHROID [Concomitant]
     Route: 048
  11. VITAMIN D [Concomitant]
     Dosage: EVERY MORNING
     Route: 048
  12. VITAMIN E [Concomitant]
     Dosage: EVERY MORNING
     Route: 048

REACTIONS (53)
  - INTERVERTEBRAL DISC DEGENERATION [None]
  - LOSS OF CONSCIOUSNESS [None]
  - PARAESTHESIA [None]
  - HEADACHE [None]
  - PARONYCHIA [None]
  - OSTEOARTHRITIS [None]
  - CARDIAC DISORDER [None]
  - LIMB DISCOMFORT [None]
  - GROIN PAIN [None]
  - MITRAL VALVE INCOMPETENCE [None]
  - MIGRAINE [None]
  - HERPES ZOSTER [None]
  - FLANK PAIN [None]
  - ARTHRALGIA [None]
  - VERTIGO [None]
  - ADVERSE EVENT [None]
  - COMPLEX REGIONAL PAIN SYNDROME [None]
  - LUNG NEOPLASM [None]
  - ASTHMA [None]
  - MUSCULAR WEAKNESS [None]
  - CONCUSSION [None]
  - HYPERTENSION [None]
  - DRUG DOSE OMISSION [None]
  - URINARY TRACT INFECTION [None]
  - VULVOVAGINAL HUMAN PAPILLOMA VIRUS INFECTION [None]
  - CEREBROVASCULAR ACCIDENT [None]
  - URGE INCONTINENCE [None]
  - CONTUSION [None]
  - GASTROOESOPHAGEAL REFLUX DISEASE [None]
  - COUGH [None]
  - MUSCLE RUPTURE [None]
  - CHEST PAIN [None]
  - LIVER FUNCTION TEST ABNORMAL [None]
  - POSTOPERATIVE RESPIRATORY DISTRESS [None]
  - DYSPNOEA [None]
  - CYSTITIS [None]
  - CERVICAL DYSPLASIA [None]
  - CONFUSIONAL STATE [None]
  - TENDON RUPTURE [None]
  - TRANSIENT ISCHAEMIC ATTACK [None]
  - NEUROMA [None]
  - TRICUSPID VALVE INCOMPETENCE [None]
  - URETHRAL CARUNCLE [None]
  - URETHRAL STENOSIS [None]
  - ADENOMATOUS POLYPOSIS COLI [None]
  - MENTAL STATUS CHANGES [None]
  - CRANIOCEREBRAL INJURY [None]
  - HAEMOPTYSIS [None]
  - FALL [None]
  - BACK INJURY [None]
  - AORTIC VALVE INCOMPETENCE [None]
  - SPINAL COLUMN STENOSIS [None]
  - BRONCHITIS [None]
